FAERS Safety Report 20877447 (Version 1)
Quarter: 2022Q2

REPORT INFORMATION
  Report Type: Spontaneous
  Country: US (occurrence: US)
  Receive Date: 20220526
  Receipt Date: 20220526
  Transmission Date: 20220721
  Serious: No
  Sender: FDA-Public Use
  Company Number: US-PFIZER INC-202200743110

PATIENT
  Age: 22 Year
  Sex: Male
  Weight: 86.18 kg

DRUGS (2)
  1. PAXLOVID [Suspect]
     Active Substance: NIRMATRELVIR\RITONAVIR
     Indication: COVID-19 treatment
     Dosage: 3 DF (2 NIRMATRELVIR AND 1 RITONAVIR)
     Route: 048
     Dates: start: 20220517
  2. TUMS [Concomitant]
     Active Substance: CALCIUM CARBONATE
     Indication: Gastrooesophageal reflux disease
     Dosage: UNK (TAKES THE TUMS EVERY NOW AND THEN)

REACTIONS (4)
  - Illness [Unknown]
  - Cough [Unknown]
  - Oropharyngeal pain [Unknown]
  - Dysphagia [Unknown]
